FAERS Safety Report 13116912 (Version 2)
Quarter: 2017Q1

REPORT INFORMATION
  Report Type: Spontaneous
  Country: US (occurrence: US)
  Receive Date: 20170116
  Receipt Date: 20170210
  Transmission Date: 20170428
  Serious: No
  Sender: FDA-Public Use
  Company Number: US-PFIZER INC-2017018422

PATIENT
  Age: 79 Year
  Sex: Female
  Weight: 78.2 kg

DRUGS (3)
  1. LYRICA [Suspect]
     Active Substance: PREGABALIN
     Indication: RESTLESS LEGS SYNDROME
     Dosage: 75 MG, CAPSULE, ORALLY, 3 TIMES A DAY
     Route: 048
  2. LYRICA [Suspect]
     Active Substance: PREGABALIN
     Indication: NERVE INJURY
     Dosage: 300 MG, DAILY (1 TAB IN AM, 1 TAB 4 PM AND 2 TAB IN PM)
     Route: 048
  3. NORVASC [Concomitant]
     Active Substance: AMLODIPINE BESYLATE
     Indication: HYPERTENSION
     Dosage: 5 MG, TABLET, ORALLY, ONCE A DAY
     Route: 048

REACTIONS (2)
  - Insomnia [Not Recovered/Not Resolved]
  - Weight increased [Recovering/Resolving]
